FAERS Safety Report 6754843-X (Version None)
Quarter: 2010Q2

REPORT INFORMATION
  Report Type: 
  Country: None (occurrence: None)
  Receive Date: 20100603
  Receipt Date: 20100407
  Transmission Date: 20101027
  Serious: Yes (Hospitalization)
  Sender: FDA-Public Use
  Company Number: JP-GENENTECH-298572

PATIENT
  Age: 83 Year
  Sex: Male

DRUGS (5)
  1. RANIBIZUMAB [Suspect]
     Indication: MACULAR DEGENERATION
     Dosage: 0.05 ML, QD
     Route: 031
     Dates: start: 20091201
  2. RANIBIZUMAB [Suspect]
     Dosage: 0.05 ML, QD
     Route: 031
     Dates: start: 20100106
  3. RANIBIZUMAB [Suspect]
     Dosage: 0.05 ML, QD
     Route: 031
     Dates: start: 20100202, end: 20100331
  4. CEFMENOXIME HYDROCHLORIDE [Concomitant]
     Indication: DRUG USE FOR UNKNOWN INDICATION
     Dosage: UNK
     Dates: start: 20091201
  5. LEVOFLOXACIN [Concomitant]
     Indication: DRUG USE FOR UNKNOWN INDICATION
     Dosage: UNK
     Dates: start: 20091201

REACTIONS (2)
  - CEREBRAL HAEMORRHAGE [None]
  - CRANIOTOMY [None]
